FAERS Safety Report 10075108 (Version 3)
Quarter: 2014Q2

REPORT INFORMATION
  Report Type: Spontaneous
  Country: US (occurrence: US)
  Receive Date: 20140414
  Receipt Date: 20140616
  Transmission Date: 20141212
  Serious: No
  Sender: FDA-Public Use
  Company Number: US-BIOGENIDEC-2014BI029649

PATIENT
  Age: 67 Year
  Sex: Female
  Weight: 70 kg

DRUGS (15)
  1. TECFIDERA [Suspect]
     Indication: MULTIPLE SCLEROSIS
     Route: 048
     Dates: start: 20140120
  2. TECFIDERA [Suspect]
     Indication: MULTIPLE SCLEROSIS
  3. AMPYRA [Concomitant]
     Indication: GAIT DISTURBANCE
     Dates: start: 2011
  4. AMPYRA [Concomitant]
     Indication: GAIT DISTURBANCE
     Dates: start: 20121130
  5. AMPYRA [Concomitant]
     Indication: GAIT DISTURBANCE
     Route: 048
     Dates: end: 201402
  6. AMPYRA [Concomitant]
     Indication: GAIT DISTURBANCE
     Route: 048
     Dates: start: 2014
  7. ADVIL [Concomitant]
  8. BACLOFEN [Concomitant]
  9. ESTRACE [Concomitant]
  10. ESTRADIOL [Concomitant]
  11. IBUPROFEN [Concomitant]
  12. OMEPRAZOLE [Concomitant]
  13. OXYBUTYNIN CHLORIDE [Concomitant]
  14. SERTRALINE HCL [Concomitant]
  15. VITAMIN D [Concomitant]

REACTIONS (2)
  - Muscle spasms [Not Recovered/Not Resolved]
  - Intentional underdose [Not Recovered/Not Resolved]
